FAERS Safety Report 14372183 (Version 1)
Quarter: 2018Q1

REPORT INFORMATION
  Report Type: Spontaneous
  Country: CZ (occurrence: CZ)
  Receive Date: 20180110
  Receipt Date: 20180110
  Transmission Date: 20180509
  Serious: Yes (Hospitalization, Other)
  Sender: FDA-Public Use
  Company Number: CZ-MYLANLABS-2017M1083826

PATIENT
  Age: 42 Year
  Sex: Male

DRUGS (4)
  1. CLONAZEPAM. [Suspect]
     Active Substance: CLONAZEPAM
     Indication: SPINAL PAIN
     Dosage: UNK
     Route: 048
  2. BACLOFEN. [Suspect]
     Active Substance: BACLOFEN
     Indication: SPINAL PAIN
     Dosage: UNK
     Route: 048
  3. CLONAZEPAM. [Suspect]
     Active Substance: CLONAZEPAM
     Indication: MUSCULOSKELETAL PAIN
  4. BACLOFEN. [Suspect]
     Active Substance: BACLOFEN
     Indication: MUSCULOSKELETAL PAIN

REACTIONS (12)
  - Drug abuse [Unknown]
  - Overdose [Unknown]
  - Confusional state [Unknown]
  - Somnolence [Unknown]
  - Sinus bradycardia [Unknown]
  - Coma [Recovering/Resolving]
  - Headache [Unknown]
  - Toxicity to various agents [Unknown]
  - Dysarthria [Unknown]
  - Seizure [Unknown]
  - Agitation [Unknown]
  - Encephalopathy [Unknown]
